FAERS Safety Report 21740930 (Version 1)
Quarter: 2022Q4

REPORT INFORMATION
  Report Type: Spontaneous
  Country: US (occurrence: None)
  Receive Date: 20221216
  Receipt Date: 20221216
  Transmission Date: 20230113
  Serious: No
  Sender: FDA-Public Use
  Company Number: None

PATIENT
  Age: 66 Year
  Sex: Male
  Weight: 76.5 kg

DRUGS (7)
  1. PAXLOVID [Suspect]
     Active Substance: NIRMATRELVIR\RITONAVIR
  2. TAMSULOSIN [Concomitant]
     Active Substance: TAMSULOSIN
  3. PANTOPRAZOLE [Concomitant]
     Active Substance: PANTOPRAZOLE
  4. OLMESARTAN [Concomitant]
     Active Substance: OLMESARTAN
  5. MELATONIN [Concomitant]
     Active Substance: MELATONIN
  6. VITAMIN B12 [Concomitant]
     Active Substance: CYANOCOBALAMIN
  7. Men^s multivitamin [Concomitant]

REACTIONS (5)
  - Abdominal pain upper [None]
  - Diarrhoea [None]
  - Rash [None]
  - Hypertension [None]
  - Taste disorder [None]

NARRATIVE: CASE EVENT DATE: 20221216
